FAERS Safety Report 5525729-3 (Version None)
Quarter: 2007Q4

REPORT INFORMATION
  Report Type: 
  Country: None (occurrence: None)
  Receive Date: 20071126
  Receipt Date: 20071113
  Transmission Date: 20080405
  Serious: Yes (Hospitalization)
  Sender: FDA-Public Use
  Company Number: FR-ROCHE-531490

PATIENT
  Age: 87 Year
  Sex: Female

DRUGS (5)
  1. ROCEPHIN [Suspect]
     Dosage: ROCEPHINE 1G/10ML. FORM: INJECTABLE SOLUTION. DOSAGE REGIMEN: ONE DOSE.
     Route: 030
     Dates: start: 20071004, end: 20071004
  2. CALCIDOSE [Concomitant]
     Dosage: DOSAGE REGIMEN: TWO DOSES QD.
     Route: 048
  3. FORLAX [Concomitant]
     Dosage: DOSAGE REGIMEN: ONE DOSE DAILY.
     Route: 048
  4. DIFFU K [Concomitant]
     Route: 048
     Dates: end: 20071007
  5. LEVOTHYROXINE SODIUM [Concomitant]
     Indication: HYPOTHYROIDISM
     Dosage: LEVOTHYROX 75. DOSAGE REGIMEN: ONE DOSE QD.
     Route: 048

REACTIONS (3)
  - HEART RATE DECREASED [None]
  - RASH GENERALISED [None]
  - SHOCK [None]
